FAERS Safety Report 5904639-3 (Version None)
Quarter: 2008Q3

REPORT INFORMATION
  Report Type: 
  Country: None (occurrence: None)
  Receive Date: 20080909
  Receipt Date: 20071022
  Transmission Date: 20090109
  Serious: Yes (Hospitalization, Disabling, Other)
  Sender: FDA-Public Use
  Company Number: 163-20785-07101299

PATIENT
  Age: 84 Year
  Sex: Male
  Weight: 71.2147 kg

DRUGS (12)
  1. THALOMID [Suspect]
     Indication: MULTIPLE MYELOMA
     Dosage: 200 MG, 4 IN 1 D, ORAL ; 150 MG, QD, ORAL ; 100 MG, QD, ORAL
     Route: 048
     Dates: start: 20050922, end: 20051011
  2. THALOMID [Suspect]
     Indication: MULTIPLE MYELOMA
     Dosage: 200 MG, 4 IN 1 D, ORAL ; 150 MG, QD, ORAL ; 100 MG, QD, ORAL
     Route: 048
     Dates: start: 20050726
  3. THALOMID [Suspect]
     Indication: MULTIPLE MYELOMA
     Dosage: 200 MG, 4 IN 1 D, ORAL ; 150 MG, QD, ORAL ; 100 MG, QD, ORAL
     Route: 048
     Dates: start: 20050825
  4. MEDROL [Suspect]
     Indication: DRUG USE FOR UNKNOWN INDICATION
     Dosage: 8 MG, 1 IN 2 D ; 16 MG, 1 IN 2 D ; 4 MG, 1 IN 2 D
     Dates: start: 20050726
  5. MEDROL [Suspect]
     Indication: DRUG USE FOR UNKNOWN INDICATION
     Dosage: 8 MG, 1 IN 2 D ; 16 MG, 1 IN 2 D ; 4 MG, 1 IN 2 D
     Dates: start: 20051001
  6. ZOMETA [Concomitant]
  7. LAXATIVES (LAXATIVES) [Concomitant]
  8. OXYCONTIN [Concomitant]
  9. ATIVAN [Concomitant]
  10. COMPAZINE [Concomitant]
  11. PRILOSEC [Concomitant]
  12. SENOKOT S (COLOXYL WITH SENNA) (TABLETS) [Concomitant]

REACTIONS (14)
  - ASTHENIA [None]
  - CONSTIPATION [None]
  - DEEP VEIN THROMBOSIS [None]
  - DYSPNOEA [None]
  - EPISTAXIS [None]
  - FATIGUE [None]
  - HYPOXIA [None]
  - LOOSE TOOTH [None]
  - MYOPATHY [None]
  - NAUSEA [None]
  - PULMONARY EMBOLISM [None]
  - RASH MORBILLIFORM [None]
  - SINUS CONGESTION [None]
  - SOMNOLENCE [None]
